FAERS Safety Report 9119565 (Version 1)
Quarter: 2013Q1

REPORT INFORMATION
  Report Type: Spontaneous
  Country: US (occurrence: None)
  Receive Date: 20130221
  Receipt Date: 20130221
  Transmission Date: 20140127
  Serious: No
  Sender: FDA-Public Use
  Company Number: None

PATIENT
  Sex: 0

DRUGS (2)
  1. OXYTOCIN [Suspect]
     Dosage: BAXTER HEALTHCARE CORPORATION INJECTABLE INJECTION IV BAG
     Route: 042
  2. MAGNESIUM SULFATE [Suspect]
     Dosage: INJECTABLE INJECTION IV BAG
     Route: 042

REACTIONS (5)
  - Blood pressure decreased [None]
  - Vomiting [None]
  - Asthenia [None]
  - Wrong drug administered [None]
  - Medication error [None]
